FAERS Safety Report 25190756 (Version 2)
Quarter: 2025Q2

REPORT INFORMATION
  Report Type: Spontaneous
  Country: US (occurrence: US)
  Receive Date: 20250411
  Receipt Date: 20250418
  Transmission Date: 20250716
  Serious: Yes (Other)
  Sender: Kenvue
  Company Number: None

PATIENT
  Age: 37 Year
  Sex: Female

DRUGS (2)
  1. KETOCONAZOLE [Suspect]
     Active Substance: KETOCONAZOLE
     Indication: Cushing^s syndrome
     Dosage: 200 MILLIGRAM, ONCE A DAY
     Route: 048
     Dates: start: 201711, end: 2017
  2. KETOCONAZOLE [Suspect]
     Active Substance: KETOCONAZOLE
     Dosage: TITRATED TO 200 MG TWICE DAILY (BID)
     Route: 048
     Dates: start: 2017, end: 20180306

REACTIONS (1)
  - Hepatotoxicity [Recovered/Resolved]

NARRATIVE: CASE EVENT DATE: 20180226
